FAERS Safety Report 20481332 (Version 1)
Quarter: 2022Q1

REPORT INFORMATION
  Report Type: Spontaneous
  Country: TW (occurrence: TW)
  Receive Date: 20220216
  Receipt Date: 20220216
  Transmission Date: 20220423
  Serious: Yes (Other)
  Sender: FDA-Public Use
  Company Number: TW-MYLANLABS-2022M1012621

PATIENT
  Age: 81 Year
  Sex: Male

DRUGS (4)
  1. METHOTREXATE [Suspect]
     Active Substance: METHOTREXATE
     Indication: Squamous cell carcinoma
     Dosage: 50 MILLIGRAM, QD
     Route: 013
  2. METHOTREXATE [Suspect]
     Active Substance: METHOTREXATE
     Dosage: 50 MILLIGRAM, EVERY 1 OR 2 WEEKS
     Route: 013
  3. LEUCOVORIN [Concomitant]
     Active Substance: LEUCOVORIN
     Indication: Squamous cell carcinoma
     Dosage: 15 MILLIGRAM, BID
     Route: 030
  4. LEUCOVORIN [Concomitant]
     Active Substance: LEUCOVORIN
     Dosage: UNK
     Route: 030

REACTIONS (5)
  - Thrombocytopenia [Unknown]
  - Feeling hot [Recovered/Resolved]
  - Erythema [Recovered/Resolved]
  - Swelling [Recovered/Resolved]
  - Hepatic enzyme increased [Recovered/Resolved]
